FAERS Safety Report 13785265 (Version 1)
Quarter: 2017Q3

REPORT INFORMATION
  Report Type: Report from Study
  Country: US (occurrence: US)
  Receive Date: 20170725
  Receipt Date: 20170725
  Transmission Date: 20171127
  Serious: Yes (Hospitalization, Other)
  Sender: FDA-Public Use
  Company Number: US-ARIAD PHARMACEUTICALS, INC-2017US008559

PATIENT
  Sex: Female

DRUGS (1)
  1. ICLUSIG [Suspect]
     Active Substance: PONATINIB
     Indication: ACUTE LYMPHOCYTIC LEUKAEMIA
     Dosage: 45 MG, QD
     Route: 048
     Dates: start: 20170623

REACTIONS (31)
  - Coagulopathy [Unknown]
  - Chest pain [Unknown]
  - Nausea [Unknown]
  - Atypical pneumonia [Unknown]
  - Streptococcal bacteraemia [Unknown]
  - Hypoxia [Unknown]
  - Hypofibrinogenaemia [Unknown]
  - Impatience [Unknown]
  - Hyperbilirubinaemia [Unknown]
  - Dizziness [Unknown]
  - Mental status changes [Unknown]
  - Agitation [Unknown]
  - Decreased interest [Unknown]
  - Dry mouth [Unknown]
  - Asthenia [Unknown]
  - Pain in extremity [Unknown]
  - Acute respiratory failure [Recovered/Resolved]
  - Enterocolitis [Unknown]
  - Irritability [Unknown]
  - Fatigue [Unknown]
  - Dehydration [Unknown]
  - Decreased appetite [Unknown]
  - Neoplasm progression [Unknown]
  - Depression [Unknown]
  - Malnutrition [Unknown]
  - Acute lymphocytic leukaemia recurrent [Unknown]
  - Pain [Unknown]
  - Sepsis [Unknown]
  - Klebsiella bacteraemia [Unknown]
  - Speech disorder [Unknown]
  - Transaminases increased [Unknown]
